FAERS Safety Report 25079577 (Version 1)
Quarter: 2025Q1

REPORT INFORMATION
  Report Type: Spontaneous
  Country: RO (occurrence: RO)
  Receive Date: 20250314
  Receipt Date: 20250314
  Transmission Date: 20250409
  Serious: Yes (Hospitalization, Other)
  Sender: MERCK SHARP & DOHME LLC
  Company Number: RO-009507513-2263116

PATIENT
  Age: 33 Year

DRUGS (12)
  1. RALTEGRAVIR [Suspect]
     Active Substance: RALTEGRAVIR
     Indication: HIV infection
     Route: 048
     Dates: start: 20170214, end: 2024
  2. EFAVIRENZ [Suspect]
     Active Substance: EFAVIRENZ
     Route: 048
     Dates: start: 19990114, end: 20021030
  3. LAMIVUDINE [Suspect]
     Active Substance: LAMIVUDINE
     Route: 048
     Dates: start: 20021031, end: 20031027
  4. ATAZANAVIR SULFATE [Suspect]
     Active Substance: ATAZANAVIR SULFATE
     Dates: start: 20140331, end: 20170214
  5. ATAZANAVIR SULFATE [Suspect]
     Active Substance: ATAZANAVIR SULFATE
     Dates: start: 20140331, end: 20170214
  6. COMBIVIR [Suspect]
     Active Substance: LAMIVUDINE\ZIDOVUDINE
     Dates: start: 20170214, end: 2024
  7. AZT [Suspect]
     Active Substance: ZIDOVUDINE
     Dates: start: 20021031, end: 20031027
  8. NELFINAVIR MESYLATE [Suspect]
     Active Substance: NELFINAVIR MESYLATE
     Route: 048
     Dates: start: 20021031, end: 20031027
  9. STAVUDINE [Suspect]
     Active Substance: STAVUDINE
     Dates: start: 20031028, end: 20080501
  10. SAQUINAVIR MESYLATE [Suspect]
     Active Substance: SAQUINAVIR MESYLATE
     Dates: start: 20031028, end: 20080501
  11. KIVEXA [Suspect]
     Active Substance: ABACAVIR SULFATE\LAMIVUDINE
     Dates: start: 20080502, end: 20140330
  12. KALETRA [Suspect]
     Active Substance: LOPINAVIR\RITONAVIR
     Dates: start: 20080205, end: 20140330

REACTIONS (11)
  - HIV-associated neurocognitive disorder [Unknown]
  - Weight decreased [Unknown]
  - Ill-defined disorder [Unknown]
  - Paresis [Unknown]
  - Malabsorption [Unknown]
  - HIV infection CDC category C [Unknown]
  - Drug resistance [Unknown]
  - Portal hypertension [Unknown]
  - Anaemia [Unknown]
  - Interstitial lung disease [Unknown]
  - Oral candidiasis [Unknown]
